FAERS Safety Report 6709654-8 (Version None)
Quarter: 2010Q2

REPORT INFORMATION
  Report Type: 
  Country: None (occurrence: None)
  Receive Date: 20100503
  Receipt Date: 20100503
  Transmission Date: 20101027
  Serious: Yes (Other)
  Sender: FDA-Public Use
  Company Number: None

PATIENT
  Age: 6 Year
  Sex: Male
  Weight: 38.1022 kg

DRUGS (3)
  1. CHILDREN'S MOTRIN [Suspect]
     Indication: OROPHARYNGEAL PAIN
     Dosage: 2 TEASPOONS 6 HOURS PO
     Route: 048
     Dates: start: 20100424, end: 20100430
  2. CHILDREN'S MOTRIN [Suspect]
     Indication: PYREXIA
     Dosage: 2 TEASPOONS 6 HOURS PO
     Route: 048
     Dates: start: 20100424, end: 20100430
  3. CHILDREN'S MOTRIN [Suspect]

REACTIONS (2)
  - ABDOMINAL PAIN UPPER [None]
  - PRODUCT QUALITY ISSUE [None]
